FAERS Safety Report 26147136 (Version 1)
Quarter: 2025Q4

REPORT INFORMATION
  Report Type: Spontaneous
  Country: AU (occurrence: AU)
  Receive Date: 20251211
  Receipt Date: 20251211
  Transmission Date: 20260117
  Serious: Yes (Other)
  Sender: MERCK SHARP & DOHME LLC
  Company Number: EU-ASPEN-AUS2025AU004624

PATIENT
  Age: 56 Year
  Sex: Male

DRUGS (7)
  1. POSACONAZOLE [Suspect]
     Active Substance: POSACONAZOLE
     Indication: Cellulitis orbital
  2. CEFEPIME [Suspect]
     Active Substance: CEFEPIME HYDROCHLORIDE
  3. MEROPENEM [Suspect]
     Active Substance: MEROPENEM
  4. VANCOMYCIN [Suspect]
     Active Substance: VANCOMYCIN
  5. CYCLOPHOSPHAMIDE [Concomitant]
     Active Substance: CYCLOPHOSPHAMIDE
  6. TACROLIMUS [Concomitant]
     Active Substance: TACROLIMUS
  7. MYCOPHENOLIC ACID [Concomitant]
     Active Substance: MYCOPHENOLIC ACID

REACTIONS (4)
  - Orbital apex syndrome [Unknown]
  - Condition aggravated [Unknown]
  - Optic neuropathy [Unknown]
  - Drug ineffective for unapproved indication [Unknown]
